FAERS Safety Report 21120782 (Version 1)
Quarter: 2022Q3

REPORT INFORMATION
  Report Type: Spontaneous
  Country: US (occurrence: None)
  Receive Date: 20220722
  Receipt Date: 20220722
  Transmission Date: 20221027
  Serious: Yes (Other)
  Sender: FDA-Public Use
  Company Number: None

PATIENT
  Age: 69 Year
  Sex: Female
  Weight: 70.2 kg

DRUGS (22)
  1. CAPECITABINE [Suspect]
     Active Substance: CAPECITABINE
     Indication: Breast cancer
     Dosage: FREQUENCY : 3 TIMES A DAY;?
     Route: 048
     Dates: start: 20201117
  2. KEFLEX [Concomitant]
     Active Substance: CEPHALEXIN
  3. AZITHROMYCIN [Concomitant]
     Active Substance: AZITHROMYCIN
  4. DEXAMETHASONE [Concomitant]
     Active Substance: DEXAMETHASONE
  5. ACETAMINOPHEN [Concomitant]
     Active Substance: ACETAMINOPHEN
  6. METFORMIN [Concomitant]
     Active Substance: METFORMIN HYDROCHLORIDE
  7. GLIPIZIDE [Concomitant]
     Active Substance: GLIPIZIDE
  8. CARVEDILOL [Concomitant]
     Active Substance: CARVEDILOL
  9. Lorsartac [Concomitant]
  10. SINGULAIR [Concomitant]
     Active Substance: MONTELUKAST SODIUM
  11. LASIX [Concomitant]
     Active Substance: FUROSEMIDE
  12. Mycinex D [Concomitant]
  13. TESSALON [Concomitant]
     Active Substance: BENZONATATE
  14. PREDNISONE [Concomitant]
     Active Substance: PREDNISONE
  15. VITAMIN D [Concomitant]
     Active Substance: VITAMIN D NOS
  16. LEVOFLOXACIN [Concomitant]
     Active Substance: LEVOFLOXACIN
  17. PANTOPRAZOLE [Concomitant]
     Active Substance: PANTOPRAZOLE
  18. CALCIUM CARBONATE [Concomitant]
     Active Substance: CALCIUM CARBONATE
  19. ONDANSETRON [Concomitant]
     Active Substance: ONDANSETRON
  20. LETROZOLE [Concomitant]
     Active Substance: LETROZOLE
  21. GLIMEPIRIDE [Concomitant]
     Active Substance: GLIMEPIRIDE
  22. LANTUS [Concomitant]
     Active Substance: INSULIN GLARGINE

REACTIONS (1)
  - Disease progression [None]
